FAERS Safety Report 25828838 (Version 2)
Quarter: 2025Q4

REPORT INFORMATION
  Report Type: Spontaneous
  Country: JP (occurrence: JP)
  Receive Date: 20250922
  Receipt Date: 20251014
  Transmission Date: 20260119
  Serious: Yes (Hospitalization)
  Sender: AMGEN
  Company Number: JP-KYOWAKIRIN-2025KK018049

PATIENT

DRUGS (1)
  1. DARBEPOETIN ALFA [Suspect]
     Active Substance: DARBEPOETIN ALFA
     Indication: Myelodysplastic syndrome
     Dosage: 180 UG
     Route: 058

REACTIONS (1)
  - Dialysis [Unknown]
